FAERS Safety Report 5809841-7 (Version None)
Quarter: 2008Q3

REPORT INFORMATION
  Report Type: 
  Country: None (occurrence: None)
  Receive Date: 20080715
  Receipt Date: 20080704
  Transmission Date: 20090109
  Serious: Yes (Hospitalization)
  Sender: FDA-Public Use
  Company Number: CH-JNJFOC-20080701767

PATIENT
  Sex: Female
  Weight: 55.5 kg

DRUGS (4)
  1. DOXORUBICIN HCL [Suspect]
     Dosage: CYCLE 5
     Route: 042
  2. DOXORUBICIN HCL [Suspect]
     Indication: MYCOSIS FUNGOIDES
     Dosage: 240MG CUMULATIVE DOSE GIVEN
     Route: 042
  3. MEFENACID [Concomitant]
     Indication: PAIN
     Route: 048
  4. METAMIZOL NATRIN [Concomitant]
     Indication: PAIN
     Route: 048

REACTIONS (1)
  - TUMOUR NECROSIS [None]
